FAERS Safety Report 4917034-0 (Version None)
Quarter: 2006Q1

REPORT INFORMATION
  Report Type: 
  Country: None (occurrence: None)
  Receive Date: 20060221
  Receipt Date: 20060208
  Transmission Date: 20060701
  Serious: Yes (Death)
  Sender: FDA-Public Use
  Company Number: US-AMGEN-US168015

PATIENT
  Sex: Female

DRUGS (11)
  1. SENSIPAR [Suspect]
     Indication: HYPERPARATHYROIDISM SECONDARY
     Route: 048
     Dates: start: 20041101, end: 20050916
  2. MEGACE [Concomitant]
  3. MIDRIN [Concomitant]
  4. INSULIN [Concomitant]
  5. PROMETHAZINE [Concomitant]
  6. RENAGEL [Concomitant]
  7. NEURONTIN [Concomitant]
  8. DARVOCET-N 50 [Concomitant]
  9. PRAVACHOL [Concomitant]
  10. NEXIUM [Concomitant]
  11. QUININE [Concomitant]

REACTIONS (3)
  - BLOOD CALCIUM INCREASED [None]
  - BLOOD PARATHYROID HORMONE INCREASED [None]
  - RENAL FAILURE CHRONIC [None]
